FAERS Safety Report 24824513 (Version 1)
Quarter: 2025Q1

REPORT INFORMATION
  Report Type: Spontaneous
  Country: US (occurrence: US)
  Receive Date: 20250109
  Receipt Date: 20250109
  Transmission Date: 20250408
  Serious: No
  Sender: AMARIN
  Company Number: US-Amarin Pharma  Inc-2024AMR000593

PATIENT
  Age: 68 Year
  Sex: Male

DRUGS (3)
  1. VASCEPA [Suspect]
     Active Substance: ICOSAPENT ETHYL
     Indication: Blood triglycerides increased
     Dates: end: 202412
  2. VASCEPA [Suspect]
     Active Substance: ICOSAPENT ETHYL
     Dates: start: 202412
  3. VASCEPA [Suspect]
     Active Substance: ICOSAPENT ETHYL
     Dates: start: 2021

REACTIONS (3)
  - Off label use [Unknown]
  - Product colour issue [Unknown]
  - Product physical issue [Unknown]
